FAERS Safety Report 5891929-6 (Version None)
Quarter: 2008Q3

REPORT INFORMATION
  Report Type: 
  Country: None (occurrence: None)
  Receive Date: 20080922
  Receipt Date: 20080918
  Transmission Date: 20090109
  Serious: Yes (Death)
  Sender: FDA-Public Use
  Company Number: JP-ASTRAZENECA-2008AP04751

PATIENT
  Age: 73 Year
  Sex: Female

DRUGS (6)
  1. ARIMIDEX [Suspect]
     Indication: BREAST CANCER
     Route: 048
     Dates: start: 20010628, end: 20040105
  2. ADALAT [Concomitant]
     Indication: HYPERTENSION
     Dosage: NUMBER OF SEPARATE DOSES UNKNOWN
     Route: 048
  3. CARDENALIN [Concomitant]
     Indication: HYPERTENSION
     Dosage: NUMBER OF SEPARATE DOSES UNKNOWN
     Route: 048
  4. DAONIL [Concomitant]
     Indication: DIABETES MELLITUS
     Dosage: NUMBER OF SEPARATE DOSES UNKNOWN
     Route: 048
  5. ALOTEC [Concomitant]
     Dosage: DOSE UNKNOWN
     Route: 065
  6. DEPAS [Concomitant]
     Dosage: DOSE UNKNOWN
     Route: 048

REACTIONS (1)
  - ACUTE MYOCARDIAL INFARCTION [None]
